FAERS Safety Report 9063695 (Version 2)
Quarter: 2013Q1

REPORT INFORMATION
  Report Type: Spontaneous
  Country: FR (occurrence: FR)
  Receive Date: 20130213
  Receipt Date: 20130318
  Transmission Date: 20140127
  Serious: Yes (Hospitalization, Congenital Anomaly)
  Sender: FDA-Public Use
  Company Number: FR-UCBSA-077875

PATIENT
  Age: 43 Year
  Sex: Female

DRUGS (6)
  1. KEPPRA [Suspect]
     Indication: EPILEPSY
     Route: 048
     Dates: start: 2012, end: 2012
  2. KEPPRA [Suspect]
     Indication: EPILEPSY
     Route: 048
     Dates: start: 2012, end: 2012
  3. KEPPRA [Suspect]
     Indication: EPILEPSY
     Route: 048
     Dates: start: 2012, end: 2012
  4. KEPPRA [Suspect]
     Indication: EPILEPSY
     Dosage: 250 MG+125 MG
     Route: 048
     Dates: start: 2012, end: 2012
  5. KEPPRA [Suspect]
     Indication: EPILEPSY
     Route: 048
     Dates: start: 2012, end: 20130211
  6. SEROPLEX [Concomitant]
     Route: 048

REACTIONS (5)
  - Tremor [Recovering/Resolving]
  - Fall [Recovering/Resolving]
  - Lethargy [Recovering/Resolving]
  - Bedridden [Not Recovered/Not Resolved]
  - Irritability [Recovering/Resolving]
